FAERS Safety Report 7894349-8 (Version None)
Quarter: 2011Q4

REPORT INFORMATION
  Report Type: 
  Country: None (occurrence: None)
  Receive Date: 20111104
  Receipt Date: 20111027
  Transmission Date: 20120403
  Serious: Yes (Hospitalization, Other)
  Sender: FDA-Public Use
  Company Number: FR-RB-033719-11

PATIENT
  Sex: Male

DRUGS (1)
  1. SUBUTEX [Suspect]
     Indication: DRUG DEPENDENCE
     Dosage: UNIT DOSE UNKNOWN
     Route: 042

REACTIONS (3)
  - INTENTIONAL DRUG MISUSE [None]
  - SEPSIS [None]
  - ENDOCARDITIS [None]
